FAERS Safety Report 17133896 (Version 1)
Quarter: 2019Q4

REPORT INFORMATION
  Report Type: Spontaneous
  Country: US (occurrence: US)
  Receive Date: 20191210
  Receipt Date: 20191210
  Transmission Date: 20200122
  Serious: No
  Sender: FDA-Public Use
  Company Number: US-UCBSA-2016037721

PATIENT
  Sex: Female
  Weight: 67.58 kg

DRUGS (1)
  1. VIMPAT [Suspect]
     Active Substance: LACOSAMIDE
     Indication: SUNCT SYNDROME
     Dosage: 50 MG, ONCE DAILY (QD)
     Dates: start: 2015

REACTIONS (2)
  - Vulvovaginal mycotic infection [Recovered/Resolved]
  - Intentional product misuse [Unknown]

NARRATIVE: CASE EVENT DATE: 2015
